FAERS Safety Report 8947084 (Version 1)
Quarter: 2012Q4

REPORT INFORMATION
  Report Type: 
  Country: US (occurrence: US)
  Receive Date: 20121205
  Receipt Date: 20121205
  Transmission Date: 20130627
  Serious: No
  Sender: FDA-Public Use
  Company Number: US-PFIZER INC-2012302597

PATIENT
  Age: 42 Year

DRUGS (1)
  1. PROTONIX [Suspect]
     Dosage: 40 mg, 1-2 times a day

REACTIONS (1)
  - Injury [Unknown]
